FAERS Safety Report 24882026 (Version 1)
Quarter: 2025Q1

REPORT INFORMATION
  Report Type: Spontaneous
  Country: GB (occurrence: GB)
  Receive Date: 20250124
  Receipt Date: 20250124
  Transmission Date: 20250409
  Serious: Yes (Death, Life-Threatening, Other)
  Sender: Kenvue
  Company Number: None

PATIENT

DRUGS (2)
  1. ACETAMINOPHEN [Suspect]
     Active Substance: ACETAMINOPHEN
     Indication: Product used for unknown indication
     Route: 065
  2. IBUPROFEN [Concomitant]
     Active Substance: IBUPROFEN
     Indication: Ill-defined disorder
     Dosage: TAKE ONE EVERY 4 HRS
     Route: 065
     Dates: start: 20240910, end: 20241105

REACTIONS (2)
  - Swelling face [Fatal]
  - Airway complication of anaesthesia [Fatal]
